FAERS Safety Report 14294176 (Version 4)
Quarter: 2018Q1

REPORT INFORMATION
  Report Type: Spontaneous
  Country: JP (occurrence: JP)
  Receive Date: 20171217
  Receipt Date: 20180216
  Transmission Date: 20180509
  Serious: Yes (Hospitalization, Other)
  Sender: FDA-Public Use
  Company Number: JP-SA-2017SA247681

PATIENT
  Sex: Female

DRUGS (8)
  1. LEVOCETIRIZINE [Suspect]
     Active Substance: LEVOCETIRIZINE
     Indication: RASH
     Route: 048
     Dates: start: 20171124, end: 20171127
  2. LEVOCETIRIZINE [Suspect]
     Active Substance: LEVOCETIRIZINE
     Indication: DRUG HYPERSENSITIVITY
     Route: 048
     Dates: start: 20171124, end: 20171127
  3. TRESIBA [Concomitant]
     Active Substance: INSULIN DEGLUDEC
  4. CARBOCISTEINE [Concomitant]
     Active Substance: CARBOCYSTEINE
  5. CARVEDILOL. [Concomitant]
     Active Substance: CARVEDILOL
  6. SYMBICORT [Concomitant]
     Active Substance: BUDESONIDE\FORMOTEROL FUMARATE DIHYDRATE
  7. SULBACTAM/AMPICILLIN [Suspect]
     Active Substance: AMPICILLIN SODIUM\SULBACTAM SODIUM
     Indication: PNEUMONIA
     Dosage: FORM: INFUSION
     Route: 042
     Dates: start: 20171124, end: 20171127
  8. NIFEDIPINE. [Concomitant]
     Active Substance: NIFEDIPINE

REACTIONS (3)
  - Acute kidney injury [Recovered/Resolved]
  - Incorrect dose administered [Unknown]
  - Drug prescribing error [Unknown]

NARRATIVE: CASE EVENT DATE: 20171127
